FAERS Safety Report 4909422-3 (Version None)
Quarter: 2006Q1

REPORT INFORMATION
  Report Type: 
  Country: None (occurrence: None)
  Receive Date: 20060209
  Receipt Date: 20060209
  Transmission Date: 20060701
  Serious: Yes (Hospitalization)
  Sender: FDA-Public Use
  Company Number: None

PATIENT
  Age: 90 Year
  Sex: Female

DRUGS (9)
  1. VALDECOXIB [Suspect]
     Indication: ARTHRITIS
     Dosage: 10 MG  TWO TIMES DAILY PO
     Route: 048
     Dates: start: 20040824, end: 20040901
  2. PAROXETINE HCL [Concomitant]
  3. TEMAZEPAM [Concomitant]
  4. PROPOXYPHENE/ACETOMINOPHINE [Concomitant]
  5. LITHIUM CARBONATE [Concomitant]
  6. LAMOTRIGINE [Concomitant]
  7. FERROUS SULFATE TAB [Concomitant]
  8. CALCIUM CARBONATE [Concomitant]
  9. TOLTERIDINE XL [Concomitant]

REACTIONS (4)
  - DYSPNOEA [None]
  - ORTHOSTATIC HYPOTENSION [None]
  - RASH MACULAR [None]
  - RASH PRURITIC [None]
